FAERS Safety Report 5043253-1 (Version None)
Quarter: 2006Q2

REPORT INFORMATION
  Report Type: 
  Country: None (occurrence: None)
  Receive Date: 20060601
  Receipt Date: 20060228
  Transmission Date: 20061013
  Serious: No
  Sender: FDA-Public Use
  Company Number: 2006PV009465

PATIENT
  Age: 54 Year
  Sex: Male
  Weight: 120.2032 kg

DRUGS (4)
  1. BYETTA [Suspect]
     Indication: DIABETES MELLITUS NON-INSULIN-DEPENDENT
     Dosage: 5 MCG ; BID; SC
     Route: 058
     Dates: start: 20060130
  2. GLUCOPHAGE [Concomitant]
  3. AMARYL [Concomitant]
  4. ACTOPLUS MET [Concomitant]

REACTIONS (1)
  - URINE OUTPUT DECREASED [None]
